FAERS Safety Report 24856083 (Version 2)
Quarter: 2025Q3

REPORT INFORMATION
  Report Type: Spontaneous
  Country: CN (occurrence: CN)
  Receive Date: 20250117
  Receipt Date: 20250809
  Transmission Date: 20251020
  Serious: Yes (Hospitalization)
  Sender: ALEXION PHARMACEUTICALS
  Company Number: CN-ASTRAZENECA-202501CHN010993CN

PATIENT
  Age: 43 Year
  Sex: Male
  Weight: 86 kg

DRUGS (1)
  1. LOKELMA [Suspect]
     Active Substance: SODIUM ZIRCONIUM CYCLOSILICATE
     Indication: Hyperkalaemia
     Dosage: 5 GRAM, QD
     Dates: start: 20250105, end: 20250107

REACTIONS (7)
  - Diarrhoea [Recovering/Resolving]
  - Headache [Recovering/Resolving]
  - Vomiting [Recovered/Resolved]
  - Abdominal pain [Recovering/Resolving]
  - Dizziness [Recovered/Resolved]
  - Peripheral swelling [Recovered/Resolved]
  - Pain in extremity [Recovered/Resolved]

NARRATIVE: CASE EVENT DATE: 20250107
